FAERS Safety Report 5314822-6 (Version None)
Quarter: 2007Q2

REPORT INFORMATION
  Report Type: 
  Country: None (occurrence: None)
  Receive Date: 20070502
  Receipt Date: 20070424
  Transmission Date: 20071010
  Serious: Yes (Hospitalization, Other)
  Sender: FDA-Public Use
  Company Number: GB-JNJFOC-20070405397

PATIENT
  Sex: Female
  Weight: 61 kg

DRUGS (11)
  1. REMICADE [Suspect]
     Indication: RHEUMATOID ARTHRITIS
     Route: 042
  2. METHOTREXATE [Concomitant]
  3. PREDNISOLONE [Concomitant]
  4. AMITRIPTYLINE HCL [Concomitant]
  5. CALCICHEW [Concomitant]
  6. CELEBREX [Concomitant]
  7. ISOSORBIDE MONONITRATE [Concomitant]
  8. LIVIAL [Concomitant]
  9. LOSEC [Concomitant]
  10. TEMAZEPAM [Concomitant]
  11. INFUMORPH [Concomitant]

REACTIONS (1)
  - BREAST CANCER [None]
